FAERS Safety Report 9728320 (Version 1)
Quarter: 2013Q4

REPORT INFORMATION
  Report Type: Report from Study
  Country: AU (occurrence: AU)
  Receive Date: 20131204
  Receipt Date: 20131204
  Transmission Date: 20140711
  Serious: Yes (Other)
  Sender: FDA-Public Use
  Company Number: AU-MILLENNIUM PHARMACEUTICALS, INC.-2013JNJ001213

PATIENT
  Sex: 0

DRUGS (6)
  1. VELCADE [Suspect]
     Indication: PLASMA CELL MYELOMA
     Dosage: 2119 MCG
     Route: 065
  2. REVLIMID [Concomitant]
     Dosage: UNK
     Dates: start: 201205
  3. DEXAMETHASONE [Concomitant]
     Dosage: 20 MG, UNK
     Dates: start: 201205
  4. CYCLOPHOSPHAMIDE [Concomitant]
  5. BACTRIM [Concomitant]
  6. ZOMETA [Concomitant]

REACTIONS (1)
  - Plasma cell leukaemia [Unknown]
